FAERS Safety Report 5604570-7 (Version None)
Quarter: 2008Q1

REPORT INFORMATION
  Report Type: 
  Country: None (occurrence: None)
  Receive Date: 20080128
  Receipt Date: 20080123
  Transmission Date: 20080703
  Serious: Yes (Death)
  Sender: FDA-Public Use
  Company Number: LB-MERCK-0801USA04665

PATIENT
  Age: 49 Year
  Sex: Male

DRUGS (6)
  1. PRIMAXIN [Suspect]
     Route: 065
  2. VANCOMYCIN [Concomitant]
     Route: 065
  3. OMEPRAZOLE [Concomitant]
     Route: 065
  4. DOBUTREX [Concomitant]
     Route: 065
  5. LEVOPHED [Concomitant]
     Route: 065
  6. [THERAPY UNSPECIFIED] [Concomitant]
     Route: 065

REACTIONS (1)
  - DEATH [None]
